FAERS Safety Report 7669232-3 (Version None)
Quarter: 2011Q3

REPORT INFORMATION
  Report Type: 
  Country: None (occurrence: None)
  Receive Date: 20110808
  Receipt Date: 20110729
  Transmission Date: 20111222
  Serious: Yes (Hospitalization)
  Sender: FDA-Public Use
  Company Number: PHHY2011US35932

PATIENT
  Sex: Male
  Weight: 67.13 kg

DRUGS (3)
  1. FOLIC ACID [Concomitant]
  2. EXJADE [Suspect]
     Indication: IRON METABOLISM DISORDER
  3. EXJADE [Suspect]
     Indication: SICKLE CELL ANAEMIA
     Dosage: 500 MG, BID
     Route: 048
     Dates: start: 20090302

REACTIONS (3)
  - SICKLE CELL ANAEMIA WITH CRISIS [None]
  - CHEST PAIN [None]
  - FULL BLOOD COUNT DECREASED [None]
